FAERS Safety Report 11679000 (Version 1)
Quarter: 2015Q4

REPORT INFORMATION
  Report Type: Report from Study
  Country: ES (occurrence: ES)
  Receive Date: 20151028
  Receipt Date: 20151028
  Transmission Date: 20160304
  Serious: Yes (Death, Hospitalization, Other)
  Sender: FDA-Public Use
  Company Number: ES-GLAXOSMITHKLINE-B0947373A

PATIENT
  Age: 25 Year
  Sex: Male
  Weight: 56.5 kg

DRUGS (15)
  1. SULFADIAZINE. [Suspect]
     Active Substance: SULFADIAZINE
     Indication: TOXOPLASMOSIS
     Dates: start: 20131007
  2. DARAPRIM [Suspect]
     Active Substance: PYRIMETHAMINE
     Indication: TOXOPLASMOSIS
     Dates: start: 20131007
  3. FLUCONAZOLE. [Concomitant]
     Active Substance: FLUCONAZOLE
     Indication: CANDIDA INFECTION
     Dosage: 200 UNK, UNK
     Dates: start: 20131029, end: 20131108
  4. ZINC SULPHATE EYE DROPS [Concomitant]
  5. BLINDED MARAVIROC [Suspect]
     Active Substance: MARAVIROC
     Dates: start: 20131029
  6. BLINDED MARAVIROC [Suspect]
     Active Substance: MARAVIROC
     Dates: start: 20131029
  7. BLINDED PLACEBO [Suspect]
     Active Substance: INVESTIGATIONAL PRODUCT
     Dates: start: 20131029
  8. ACICLOVIR [Suspect]
     Active Substance: ACYCLOVIR
     Indication: TOXOPLASMOSIS
     Dosage: 750 UNK, UNK
     Dates: start: 20131029
  9. BLINDED MARAVIROC [Suspect]
     Active Substance: MARAVIROC
     Dates: start: 20131029
  10. LEDERFOLIN [Suspect]
     Active Substance: LEUCOVORIN CALCIUM
     Indication: TOXOPLASMOSIS
     Route: 048
     Dates: start: 20131007
  11. RALTEGRAVIR. [Concomitant]
     Active Substance: RALTEGRAVIR
     Indication: HIV INFECTION
     Dates: start: 20131029
  12. BLINDED DIPYRONE [Suspect]
     Active Substance: DIPYRONE
     Dates: start: 20131029
  13. BLINDED PLACEBO [Suspect]
     Active Substance: INVESTIGATIONAL PRODUCT
     Dates: start: 20131029
  14. FAMVIR [Suspect]
     Active Substance: FAMCICLOVIR
     Indication: TOXOPLASMOSIS
     Dates: start: 20131029
  15. TRUVADA [Concomitant]
     Active Substance: EMTRICITABINE\TENOFOVIR DISOPROXIL FUMARATE
     Indication: HIV INFECTION
     Dates: start: 20131029

REACTIONS (10)
  - Hypokalaemia [Recovered/Resolved]
  - Gastrointestinal haemorrhage [Fatal]
  - Bacteraemia [Fatal]
  - Disseminated cytomegaloviral infection [Fatal]
  - Abdominal pain upper [Recovered/Resolved]
  - Histoplasmosis [Fatal]
  - Nausea [Recovered/Resolved]
  - Hyponatraemia [Recovered/Resolved]
  - Vomiting [Recovered/Resolved]
  - Sepsis [Fatal]

NARRATIVE: CASE EVENT DATE: 20131101
